FAERS Safety Report 14762658 (Version 2)
Quarter: 2019Q2

REPORT INFORMATION
  Report Type: Spontaneous
  Country: US (occurrence: US)
  Receive Date: 20180416
  Receipt Date: 20190418
  Transmission Date: 20190711
  Serious: No
  Sender: FDA-Public Use
  Company Number: US-PFIZER INC-2018150283

PATIENT
  Age: 74 Year
  Sex: Female
  Weight: 53.7 kg

DRUGS (8)
  1. LYRICA CR [Suspect]
     Active Substance: PREGABALIN
     Indication: PARAESTHESIA
  2. LYRICA CR [Suspect]
     Active Substance: PREGABALIN
     Indication: NERVE INJURY
     Dosage: 1 TABLET, 1X/DAY
     Route: 048
     Dates: start: 20180407
  3. ZOLOFT [Concomitant]
     Active Substance: SERTRALINE HYDROCHLORIDE
     Indication: DEPRESSION
     Dosage: UNK
  4. LYRICA CR [Suspect]
     Active Substance: PREGABALIN
     Indication: FOOT DEFORMITY
  5. LYRICA CR [Suspect]
     Active Substance: PREGABALIN
     Indication: HYPOAESTHESIA
  6. HYZAAR [Concomitant]
     Active Substance: HYDROCHLOROTHIAZIDE\LOSARTAN POTASSIUM
     Indication: BLOOD PRESSURE ABNORMAL
     Dosage: UNK
     Dates: end: 201903
  7. XANAX [Concomitant]
     Active Substance: ALPRAZOLAM
     Indication: NEURALGIA
     Dosage: UNK
  8. TRAMADOL. [Concomitant]
     Active Substance: TRAMADOL
     Indication: NEURALGIA
     Dosage: UNK

REACTIONS (5)
  - Thinking abnormal [Unknown]
  - Drug ineffective [Not Recovered/Not Resolved]
  - Dizziness [Recovered/Resolved]
  - Mental disorder [Recovered/Resolved]
  - Impaired driving ability [Recovered/Resolved]

NARRATIVE: CASE EVENT DATE: 201804
